FAERS Safety Report 7621084-3 (Version None)
Quarter: 2011Q3

REPORT INFORMATION
  Report Type: 
  Country: None (occurrence: None)
  Receive Date: 20110719
  Receipt Date: 20110114
  Transmission Date: 20111222
  Serious: No
  Sender: FDA-Public Use
  Company Number: US-KINGPHARMUSA00001-K201100071

PATIENT
  Sex: Male
  Weight: 81.179 kg

DRUGS (1)
  1. LEVOXYL [Suspect]
     Indication: HYPOTHYROIDISM
     Dosage: UNK MCG
     Route: 048
     Dates: start: 20080101, end: 20080101

REACTIONS (1)
  - DYSGEUSIA [None]
